FAERS Safety Report 9111867 (Version 1)
Quarter: 2013Q1

REPORT INFORMATION
  Report Type: Spontaneous
  Country: US (occurrence: US)
  Receive Date: 20130219
  Receipt Date: 20130219
  Transmission Date: 20140127
  Serious: No
  Sender: FDA-Public Use
  Company Number: US-BRISTOL-MYERS SQUIBB COMPANY-17047523

PATIENT
  Age: 46 Year
  Sex: Female
  Weight: 92.51 kg

DRUGS (12)
  1. ABATACEPT SUBQ INJECTION 125MG/ML [Suspect]
     Indication: RHEUMATOID ARTHRITIS
     Dosage: LAST DOSE:10OCT2012,EVERY WEDNESDAY.
     Route: 058
     Dates: start: 2012
  2. ABATACEPT SUBQ INJECTION 125MG/ML [Suspect]
     Indication: OSTEOARTHRITIS
     Dosage: LAST DOSE:10OCT2012,EVERY WEDNESDAY.
     Route: 058
     Dates: start: 2012
  3. METHOTREXATE [Suspect]
  4. DICLOFENAC [Concomitant]
  5. ATENOLOL [Concomitant]
  6. MINOCYCLINE [Concomitant]
  7. ZOCOR [Concomitant]
  8. INSULIN [Concomitant]
     Dosage: INSULIN PEN.
  9. XANAX [Concomitant]
  10. ADVIL [Concomitant]
  11. HYDROCODONE [Concomitant]
  12. LEVOTHYROXINE [Concomitant]

REACTIONS (3)
  - Skin exfoliation [Not Recovered/Not Resolved]
  - Oral pain [Not Recovered/Not Resolved]
  - Influenza [Not Recovered/Not Resolved]
